FAERS Safety Report 25723422 (Version 1)
Quarter: 2025Q3

REPORT INFORMATION
  Report Type: Report from Study
  Country: US (occurrence: US)
  Receive Date: 20250825
  Receipt Date: 20250825
  Transmission Date: 20251021
  Serious: Yes (Hospitalization)
  Sender: EISAI
  Company Number: US-Eisai-EC-2025-195374

PATIENT
  Age: 71 Year
  Sex: Female
  Weight: 48 kg

DRUGS (10)
  1. LENVIMA [Suspect]
     Active Substance: LENVATINIB
     Indication: Endometrial cancer
     Route: 048
     Dates: start: 20211215, end: 20220328
  2. LENVIMA [Suspect]
     Active Substance: LENVATINIB
     Route: 048
     Dates: start: 20220329, end: 2022
  3. LENVIMA [Suspect]
     Active Substance: LENVATINIB
     Route: 048
     Dates: start: 20220607, end: 20220715
  4. LENVIMA [Suspect]
     Active Substance: LENVATINIB
     Route: 048
     Dates: start: 20220722, end: 2022
  5. LENVIMA [Suspect]
     Active Substance: LENVATINIB
     Dosage: HELD FOR 1 WEEK
     Route: 048
     Dates: end: 2024
  6. LENVIMA [Suspect]
     Active Substance: LENVATINIB
     Route: 048
     Dates: start: 2024, end: 202506
  7. LENVIMA [Suspect]
     Active Substance: LENVATINIB
     Route: 048
     Dates: start: 20250730
  8. TYLENOL [Concomitant]
     Active Substance: ACETAMINOPHEN
     Indication: Arthralgia
  9. LEVOTHYROXINE [Concomitant]
     Active Substance: LEVOTHYROXINE
  10. KEYTRUDA [Concomitant]
     Active Substance: PEMBROLIZUMAB

REACTIONS (4)
  - Hepatic enzyme increased [Recovered/Resolved]
  - Fatigue [Unknown]
  - Decreased appetite [Unknown]
  - Taste disorder [Unknown]

NARRATIVE: CASE EVENT DATE: 20250101
